FAERS Safety Report 5471050-1 (Version None)
Quarter: 2007Q3

REPORT INFORMATION
  Report Type: 
  Country: None (occurrence: None)
  Receive Date: 20070928
  Receipt Date: 20060816
  Transmission Date: 20080115
  Serious: No
  Sender: FDA-Public Use
  Company Number: A0616947A

PATIENT
  Age: 8 Year
  Sex: Female

DRUGS (2)
  1. LAMICTAL [Suspect]
     Indication: EPILEPSY
     Dosage: 10MG TWICE PER DAY
     Route: 048
  2. VITAMINS [Concomitant]

REACTIONS (2)
  - READING DISORDER [None]
  - SLUGGISHNESS [None]
